FAERS Safety Report 5480988-0 (Version None)
Quarter: 2007Q4

REPORT INFORMATION
  Report Type: 
  Country: None (occurrence: None)
  Receive Date: 20071004
  Receipt Date: 20070926
  Transmission Date: 20080405
  Serious: Yes (Hospitalization)
  Sender: FDA-Public Use
  Company Number: 2007SP009467

PATIENT
  Age: 55 Year
  Sex: Male
  Weight: 62 kg

DRUGS (10)
  1. PEG-INTRON [Suspect]
     Indication: HEPATITIS C
     Dosage: 100 MCG;QW;SC
     Route: 058
     Dates: start: 20060201, end: 20060629
  2. REBETOL [Suspect]
     Indication: HEPATITIS C
     Dosage: 800 MG;QD;PO
     Route: 048
     Dates: start: 20060201, end: 20060629
  3. TAKEPRON OD [Concomitant]
  4. ASPIRIN [Concomitant]
  5. TICLOPIDINE HCL [Concomitant]
  6. PRAVASTATIN [Concomitant]
  7. JUZENTAIHOTO [Concomitant]
  8. PROMAC [Concomitant]
  9. JUVELA NICOTINATE [Concomitant]
  10. SUCRALFATE [Concomitant]

REACTIONS (2)
  - EPIGASTRIC DISCOMFORT [None]
  - JAUNDICE CHOLESTATIC [None]
